FAERS Safety Report 10446706 (Version 1)
Quarter: 2014Q3

REPORT INFORMATION
  Report Type: Spontaneous
  Country: US (occurrence: None)
  Receive Date: 20140910
  Receipt Date: 20140910
  Transmission Date: 20150326
  Serious: Yes (Other)
  Sender: FDA-Public Use
  Company Number: None

PATIENT
  Age: 65 Year
  Sex: Female
  Weight: 113.4 kg

DRUGS (2)
  1. HYDROCODONE-APAP [Suspect]
     Active Substance: ACETAMINOPHEN\HYDROCODONE
     Indication: TOOTH INFECTION
     Dosage: ONE TO TWO TABLETS, AS NEEDED, TAKEN BY MOUTH
     Route: 048
     Dates: start: 20140828
  2. HYDROCODONE-APAP [Suspect]
     Active Substance: ACETAMINOPHEN\HYDROCODONE
     Indication: ENDODONTIC PROCEDURE
     Dosage: ONE TO TWO TABLETS, AS NEEDED, TAKEN BY MOUTH
     Route: 048
     Dates: start: 20140828

REACTIONS (2)
  - Product substitution issue [None]
  - Headache [None]

NARRATIVE: CASE EVENT DATE: 20140814
